FAERS Safety Report 9485012 (Version 1)
Quarter: 2013Q3

REPORT INFORMATION
  Report Type: Spontaneous
  Country: US (occurrence: US)
  Receive Date: 20130828
  Receipt Date: 20130828
  Transmission Date: 20140515
  Serious: No
  Sender: FDA-Public Use
  Company Number: US-ABBOTT-13P-163-1130679-00

PATIENT
  Age: 59 Year
  Sex: Male
  Weight: 79.45 kg

DRUGS (3)
  1. ANDROGEL [Suspect]
     Indication: BLOOD TESTOSTERONE DECREASED
     Dosage: TWO PUMPS PER DAY
     Dates: start: 2012, end: 2012
  2. ANDROGEL [Suspect]
     Dosage: FOUR PUMPS PER DAY
     Dates: start: 201301, end: 201305
  3. ANDROGEL [Suspect]
     Dosage: SIX PUMPS PER DAY
     Dates: start: 201305

REACTIONS (2)
  - Blood testosterone decreased [Not Recovered/Not Resolved]
  - Drug administered at inappropriate site [Unknown]
